FAERS Safety Report 15325903 (Version 2)
Quarter: 2018Q4

REPORT INFORMATION
  Report Type: Spontaneous
  Country: US (occurrence: US)
  Receive Date: 20180828
  Receipt Date: 20181031
  Transmission Date: 20190204
  Serious: No
  Sender: FDA-Public Use
  Company Number: US-PFIZER INC-2018345050

PATIENT
  Age: 57 Year
  Sex: Female

DRUGS (2)
  1. IBRANCE [Suspect]
     Active Substance: PALBOCICLIB
     Dosage: 125 MG, ALTERNATE DAY
  2. IBRANCE [Suspect]
     Active Substance: PALBOCICLIB
     Dosage: 125 MG, CYCLIC [ONCE DAILY (QD) DAY 1-21 THEN 7 DAYS OFF/ LZSMG QD X 21 DAYS, 7 DAYS OFF]
     Route: 048

REACTIONS (3)
  - Decreased appetite [Unknown]
  - Ageusia [Unknown]
  - Diarrhoea [Recovering/Resolving]
